FAERS Safety Report 23047118 (Version 1)
Quarter: 2023Q4

REPORT INFORMATION
  Report Type: Report from Study
  Country: ES (occurrence: ES)
  Receive Date: 20231009
  Receipt Date: 20231009
  Transmission Date: 20240109
  Serious: Yes (Death)
  Sender: FDA-Public Use
  Company Number: ES-MALLINCKRODT-MNK202304731

PATIENT
  Sex: Male

DRUGS (10)
  1. UVADEX [Suspect]
     Active Substance: METHOXSALEN
     Indication: Graft versus host disease in gastrointestinal tract
     Dosage: UNK
     Route: 050
  2. UVADEX [Suspect]
     Active Substance: METHOXSALEN
     Indication: Chronic graft versus host disease in liver
  3. UVADEX [Suspect]
     Active Substance: METHOXSALEN
     Indication: Graft versus host disease in lung
  4. UVADEX [Suspect]
     Active Substance: METHOXSALEN
     Indication: Graft versus host disease in skin
  5. ACITRETIN [Concomitant]
     Active Substance: ACITRETIN
     Indication: Psoriasis
     Dosage: UNK
  6. USTEKINUMAB [Concomitant]
     Active Substance: USTEKINUMAB
     Indication: Psoriasis
     Dosage: UNK
  7. RUXOLITINIB [Concomitant]
     Active Substance: RUXOLITINIB
     Dosage: UNK
  8. RUXOLITINIB [Concomitant]
     Active Substance: RUXOLITINIB
  9. RUXOLITINIB [Concomitant]
     Active Substance: RUXOLITINIB
  10. RUXOLITINIB [Concomitant]
     Active Substance: RUXOLITINIB

REACTIONS (3)
  - Blood disorder [Fatal]
  - Condition aggravated [Fatal]
  - Product use in unapproved indication [Unknown]
